FAERS Safety Report 8966891 (Version 1)
Quarter: 2012Q4

REPORT INFORMATION
  Report Type: Report from Study
  Country: IL (occurrence: IL)
  Receive Date: 20121214
  Receipt Date: 20121214
  Transmission Date: 20130627
  Serious: Yes (Hospitalization, Other)
  Sender: FDA-Public Use
  Company Number: IL-PFIZER INC-2012312162

PATIENT
  Age: 58 Year
  Sex: Male
  Weight: 85.8 kg

DRUGS (26)
  1. SOLU-MEDROL [Suspect]
     Dosage: 125 mg, 1x/day
     Route: 042
     Dates: start: 20040617, end: 20040619
  2. PREDNISOLONE [Suspect]
     Indication: PROPHYLAXIS AGAINST RENAL TRANSPLANT REJECTION
     Dosage: 10 mg, 1x/day
     Route: 048
     Dates: start: 20040816
  3. PREDNISONE [Suspect]
     Indication: PROPHYLAXIS AGAINST RENAL TRANSPLANT REJECTION
     Dosage: 10 mg, 1x/day
  4. PREDNISONE [Suspect]
     Dosage: 5 mg, 1x/day
     Route: 048
     Dates: start: 20040619
  5. DACLIZUMAB [Suspect]
     Indication: PROPHYLAXIS AGAINST RENAL TRANSPLANT REJECTION
     Dosage: 25 mg, UNK
     Route: 042
     Dates: start: 20040617, end: 20040816
  6. MYCOPHENOLATE MOFETIL [Suspect]
     Indication: PROPHYLAXIS AGAINST RENAL TRANSPLANT REJECTION
     Dosage: 250 mg, UNK
     Route: 048
     Dates: start: 20040617, end: 20041214
  7. VALGANCICLOVIR [Suspect]
     Indication: CYTOMEGALOVIRUS PROPHYLAXIS
     Dosage: UNK
     Dates: start: 2004, end: 20040823
  8. CICLOSPORIN [Suspect]
     Indication: PROPHYLAXIS AGAINST RENAL TRANSPLANT REJECTION
     Dosage: 150 mg, 2x/day
     Route: 048
     Dates: start: 20040617
  9. SIMVASTATIN [Concomitant]
     Route: 048
  10. ATENOLOL [Concomitant]
     Dosage: 25 mg, 1x/day
     Route: 048
     Dates: start: 20040618
  11. DOXAZOSIN MESILATE [Concomitant]
     Dosage: 2 mg, 1x/day
     Route: 048
     Dates: start: 20040618
  12. CO-TRIMOXAZOLE [Concomitant]
     Dosage: 480 mg, UNK
     Route: 048
     Dates: start: 20040706
  13. FUROSEMIDE [Concomitant]
     Dosage: 40 mg, 1x/day
     Route: 048
     Dates: start: 20040719
  14. ACARBOSE [Concomitant]
     Dosage: 50 mg, 1x/day
     Route: 048
     Dates: start: 20040923
  15. CHLORPROMAZINE [Concomitant]
     Dosage: 25 mg, 2x/day
     Route: 048
     Dates: start: 20041115
  16. AMPICILLIN SODIUM W/SULBACTAM SODIUM [Concomitant]
     Dosage: 4 g, 1x/day
     Route: 042
     Dates: start: 20040823, end: 20040923
  17. ATORVASTATIN CALCIUM [Concomitant]
     Dosage: 20 mg, 1x/day
     Dates: start: 20040712, end: 20040823
  18. AZTREONAM [Concomitant]
     Dosage: UNK
     Dates: start: 20041107, end: 20041118
  19. CEFTRIAXONE [Concomitant]
     Dosage: 1 g, 1x/day
     Dates: start: 20040823
  20. ERTAPENEM [Concomitant]
     Dosage: 1000 mg, 1x/day
     Route: 042
     Dates: start: 20040923, end: 20041007
  21. FILGRASTIM [Concomitant]
     Dosage: 300 mg, 1x/day
     Route: 058
     Dates: start: 20040825, end: 20050826
  22. HEPARIN [Concomitant]
     Dosage: 5000 IU, 2x/day
     Route: 058
     Dates: start: 20040618, end: 20040702
  23. HYDROXYZINE [Concomitant]
     Dosage: 25 mg, 1x/day
     Route: 048
     Dates: start: 20040902, end: 20040904
  24. IMIPENEM [Concomitant]
     Dosage: 500 mg, 3x/day
     Route: 042
     Dates: start: 20040824, end: 20041214
  25. OFLOXACIN [Concomitant]
     Dosage: UNK
     Route: 048
     Dates: start: 20040914, end: 20040923
  26. PROMETHAZINE [Concomitant]
     Dosage: 25 mg, 1x/day
     Route: 030
     Dates: start: 20040902, end: 20040903

REACTIONS (6)
  - Kaposi^s sarcoma [Unknown]
  - Cystitis klebsiella [Recovering/Resolving]
  - Epididymitis [Recovered/Resolved]
  - Urinary tract infection [Unknown]
  - Febrile neutropenia [Recovered/Resolved]
  - Haematuria [Unknown]
